FAERS Safety Report 7715413-X (Version None)
Quarter: 2011Q3

REPORT INFORMATION
  Report Type: 
  Country: None (occurrence: None)
  Receive Date: 20110810
  Receipt Date: 20110525
  Transmission Date: 20111222
  Serious: Yes (Other)
  Sender: FDA-Public Use
  Company Number: 1000021138

PATIENT
  Age: 53 Year
  Sex: Male

DRUGS (8)
  1. MAG OX (MAGNESIUM OXIDE) (MAGNESIUM OXIDE) [Concomitant]
  2. WARFARIN SODIUM [Concomitant]
  3. METHOTREXATE [Concomitant]
  4. OMEPRAZOLE [Concomitant]
  5. FOLIC ACID [Concomitant]
  6. METOPROLOL SUCCINATE [Concomitant]
  7. PREDNISONE [Concomitant]
  8. SAVELLA [Suspect]
     Indication: FIBROMYALGIA
     Dosage: ORAL
     Route: 048
     Dates: start: 20091030, end: 20091124

REACTIONS (1)
  - SUICIDAL IDEATION [None]
